FAERS Safety Report 5426889-5 (Version None)
Quarter: 2007Q3

REPORT INFORMATION
  Report Type: 
  Country: None (occurrence: None)
  Receive Date: 20070827
  Receipt Date: 20070405
  Transmission Date: 20080115
  Serious: No
  Sender: FDA-Public Use
  Company Number: US-BOEHRINGER INGELHEIM PHARMACEUTICALS, INC.-2007-BP-04445PF

PATIENT
  Sex: Male

DRUGS (3)
  1. SPIRIVA [Suspect]
     Route: 055
  2. ADVAIR DISKUS 100/50 [Concomitant]
  3. ANTIBIOTICS [Concomitant]

REACTIONS (2)
  - BRONCHITIS [None]
  - PNEUMONIA [None]
